FAERS Safety Report 9015786 (Version 1)
Quarter: 2013Q1

REPORT INFORMATION
  Report Type: Spontaneous
  Country: US (occurrence: None)
  Receive Date: 20130102
  Receipt Date: 20130102
  Transmission Date: 20140127
  Serious: Yes (Death, Other)
  Sender: FDA-Public Use
  Company Number: 2012-670

PATIENT
  Age: 57 Year
  Sex: Male

DRUGS (30)
  1. FAZACLO [Suspect]
     Indication: SCHIZOPHRENIA
     Route: 048
     Dates: start: 20080801, end: 20121115
  2. FAZACLO [Suspect]
     Indication: PSYCHOTIC DISORDER
     Route: 048
     Dates: start: 20080801, end: 20121115
  3. CALCITRIOL (CALCITRIOL) [Concomitant]
  4. DEPAKOTE (VALPROATE SEMISODIUM) [Concomitant]
  5. DULCOLAX (BISACODYL) [Concomitant]
  6. FERROUS SULFATE (FERROUS SULFATE) [Concomitant]
  7. KEPPRA (LEVETIRACETAM) [Concomitant]
  8. METFORMIN HCL (METFORMIN HYDROCHLORIDE) [Concomitant]
  9. MILK OF MAGNESIA (MAGNESIUM HYDROXIDE) [Concomitant]
  10. MYLANTA (CALCIUM CARBONATE) [Concomitant]
  11. PRILOSEC [Concomitant]
  12. ROXANOL (MORPHINE SULFATE) [Concomitant]
  13. TYLENOL (PARACETAMOL) [Concomitant]
  14. LIDOCAINE VISCOUS (LIDOCAINE HYDROCHLORIDE) [Concomitant]
  15. EFFEXOR XR (VENLAFAXINE HYDROCHLORIDE) [Concomitant]
  16. PAXIL (PAROXETINE HYDROCHLORIDE) [Concomitant]
  17. DEPAKENE (VALPROATE SODIUM) [Concomitant]
  18. RISPERDAL (RISPERIDONE) [Concomitant]
  19. ZYPREXA (OLANZAPINE) [Concomitant]
  20. ATIVAN (LORAZEPAM) [Concomitant]
  21. FENTANYL (FENTANYL) [Concomitant]
  22. NORCO (HYDROCODONE BITARTRATE, PARACETAMOL) [Concomitant]
  23. BUDESONIDE (BUDESONIDE) [Concomitant]
  24. MULTIVITAMINS W/MINERALS (MINERALS NOS, VITAMINS NOS) [Concomitant]
  25. PEPCID (FAMOTIDINE) [Concomitant]
  26. FLEET ENEMA (SODIUM PHOSPHATE DIBASIC (HEPTAHYDRATE), SODIUM PHOSPHATE MONOBASIC (MONOHYDRATE)) [Concomitant]
  27. VITAMIN B COMPLEX (CALCIUM PANTOTHENATE, NICOTINAMIDE, PYRIDOXINE HYDROCHLORIDE, RIBOFLAVIN, THIAMINE HYDROCHLORIDE) [Concomitant]
  28. VITAMIN C (ASCORBIC ACID)PREDNISONE (PREDNISONE) [Concomitant]
  29. ALBUTEROL SULFATE AND IPRATROPIUM BROMIDE (IPRATROPIUM BROMIDE, ALBUTEROL SUFATE) [Concomitant]
  30. PREDNISONE (PREDNISONE) [Concomitant]

REACTIONS (8)
  - Neoplasm malignant [None]
  - Convulsion [None]
  - Unresponsive to stimuli [None]
  - Gait disturbance [None]
  - Muscle atrophy [None]
  - Respiratory disorder [None]
  - Dysphagia [None]
  - Dyspnoea [None]
